FAERS Safety Report 8507648-3 (Version None)
Quarter: 2012Q3

REPORT INFORMATION
  Report Type: 
  Country: None (occurrence: None)
  Receive Date: 20120713
  Receipt Date: 20120706
  Transmission Date: 20120928
  Serious: No
  Sender: FDA-Public Use
  Company Number: US-BIOGENIDEC-2012BI024059

PATIENT
  Age: 14 Year
  Sex: Female

DRUGS (1)
  1. TYSABRI [Suspect]
     Indication: MULTIPLE SCLEROSIS
     Route: 042
     Dates: start: 20120501

REACTIONS (6)
  - MUSCULAR WEAKNESS [None]
  - PALLOR [None]
  - NERVOUSNESS [None]
  - POOR VENOUS ACCESS [None]
  - FATIGUE [None]
  - SYNCOPE [None]
